FAERS Safety Report 24757202 (Version 1)
Quarter: 2024Q4

REPORT INFORMATION
  Report Type: Spontaneous
  Country: NL (occurrence: NL)
  Receive Date: 20241220
  Receipt Date: 20241220
  Transmission Date: 20250114
  Serious: Yes (Life-Threatening, Hospitalization, Other)
  Sender: SANOFI AVENTIS
  Company Number: None

PATIENT
  Age: 45 Year
  Sex: Male
  Weight: 57 kg

DRUGS (4)
  1. CAPECITABINE [Suspect]
     Active Substance: CAPECITABINE
     Indication: Colon cancer
     Dosage: 1500 MG, Q12H (3?4 TABLETS TWICE DAILY)
     Route: 048
     Dates: start: 20240704, end: 20240808
  2. OXALIPLATIN [Suspect]
     Active Substance: OXALIPLATIN
     Indication: Colon cancer
     Dosage: 225 MG, Q3W (225 MG ONCE DAILY FOR 3 WEEKS)
     Route: 065
     Dates: start: 20240704, end: 20240725
  3. CEFUROXIME [Concomitant]
     Active Substance: CEFUROXIME
     Dosage: UNK
     Route: 065
  4. POTASSIUM CHLORIDE [Concomitant]
     Active Substance: POTASSIUM CHLORIDE
     Dosage: UNK (DOSAGE TEXT G.K.4.R.8 INFUSION, 1 MG/MG (MILLIGRAMS PER MILLIGRAM))
     Route: 065

REACTIONS (1)
  - Necrotising oesophagitis [Recovering/Resolving]
